FAERS Safety Report 11164366 (Version 1)
Quarter: 2015Q2

REPORT INFORMATION
  Report Type: Spontaneous
  Country: US (occurrence: US)
  Receive Date: 20150604
  Receipt Date: 20150604
  Transmission Date: 20150821
  Serious: Yes (Other)
  Sender: FDA-Public Use
  Company Number: US-ROCHE-1584564

PATIENT
  Age: 24 Year
  Sex: Female
  Weight: 69.92 kg

DRUGS (6)
  1. VALIUM [Suspect]
     Active Substance: DIAZEPAM
     Indication: PRODUCT USED FOR UNKNOWN INDICATION
     Route: 065
  2. PROVIGIL [Suspect]
     Active Substance: MODAFINIL
     Indication: PRODUCT USED FOR UNKNOWN INDICATION
     Route: 065
     Dates: start: 201303
  3. PERCOCET [Suspect]
     Active Substance: ACETAMINOPHEN\OXYCODONE HYDROCHLORIDE
     Indication: PRODUCT USED FOR UNKNOWN INDICATION
     Route: 065
  4. PROVIGIL [Suspect]
     Active Substance: MODAFINIL
     Route: 065
     Dates: end: 201403
  5. PROVIGIL [Suspect]
     Active Substance: MODAFINIL
     Route: 065
     Dates: start: 201406
  6. ADDERALL [Suspect]
     Active Substance: AMPHETAMINE ASPARTATE\AMPHETAMINE SULFATE\DEXTROAMPHETAMINE SACCHARATE\DEXTROAMPHETAMINE SULFATE
     Indication: PRODUCT USED FOR UNKNOWN INDICATION
     Route: 065

REACTIONS (7)
  - Drug resistance [Unknown]
  - Alcoholic [Unknown]
  - Restlessness [Unknown]
  - Chills [Unknown]
  - Drug ineffective [Unknown]
  - Adverse drug reaction [Unknown]
  - Movement disorder [Unknown]

NARRATIVE: CASE EVENT DATE: 201403
